FAERS Safety Report 7532469-8 (Version None)
Quarter: 2011Q2

REPORT INFORMATION
  Report Type: 
  Country: None (occurrence: None)
  Receive Date: 20110608
  Receipt Date: 20110526
  Transmission Date: 20111010
  Serious: Yes (Other)
  Sender: FDA-Public Use
  Company Number: PHHY2011US45997

PATIENT
  Age: 77 Year
  Sex: Female

DRUGS (1)
  1. GENTEAL [Suspect]
     Dosage: UNK UKN, BID

REACTIONS (2)
  - DRUG INEFFECTIVE [None]
  - DRY EYE [None]
